FAERS Safety Report 10372068 (Version 1)
Quarter: 2014Q3

REPORT INFORMATION
  Report Type: Spontaneous
  Country: US (occurrence: US)
  Receive Date: 20140808
  Receipt Date: 20140808
  Transmission Date: 20150326
  Serious: Yes (Other)
  Sender: FDA-Public Use
  Company Number: US-TEVA-499450USA

PATIENT
  Sex: Female

DRUGS (1)
  1. COPAXONE [Suspect]
     Active Substance: GLATIRAMER ACETATE
     Indication: MULTIPLE SCLEROSIS
     Dosage: UNKNOWN
     Route: 065

REACTIONS (8)
  - Multiple sclerosis [Unknown]
  - Incorrect route of drug administration [Recovered/Resolved]
  - Dyspnoea [Recovered/Resolved]
  - Pruritus [Recovered/Resolved]
  - Tremor [Recovered/Resolved]
  - Swollen tongue [Recovered/Resolved]
  - Anaphylactic shock [Unknown]
  - Night sweats [Recovered/Resolved]

NARRATIVE: CASE EVENT DATE: 200909
